FAERS Safety Report 9008696 (Version 2)
Quarter: 2013Q1

REPORT INFORMATION
  Report Type: Spontaneous
  Country: FR (occurrence: FR)
  Receive Date: 20130111
  Receipt Date: 20130307
  Transmission Date: 20140127
  Serious: Yes (Other)
  Sender: FDA-Public Use
  Company Number: FR-ROCHE-1178451

PATIENT
  Age: 16 Year
  Sex: Male

DRUGS (12)
  1. MABTHERA [Suspect]
     Indication: B-CELL LYMPHOMA
     Route: 041
     Dates: start: 20121120
  2. MABTHERA [Suspect]
     Route: 041
     Dates: start: 20121127, end: 20121127
  3. MABTHERA [Suspect]
     Route: 041
     Dates: start: 20121129
  4. MABTHERA [Suspect]
     Route: 041
     Dates: start: 20121216
  5. MABTHERA [Suspect]
     Route: 041
     Dates: start: 20121218
  6. ENDOXAN [Concomitant]
  7. CYTARABINE [Concomitant]
  8. METHOTREXATE [Concomitant]
     Route: 037
  9. POLARAMINE [Concomitant]
  10. SOLU-MEDROL [Concomitant]
  11. PERFALGAN [Concomitant]
  12. VINCRISTINE [Concomitant]

REACTIONS (2)
  - Dyspnoea [Recovered/Resolved]
  - Rales [Recovered/Resolved]
